FAERS Safety Report 25614017 (Version 1)
Quarter: 2025Q3

REPORT INFORMATION
  Report Type: Spontaneous
  Country: US (occurrence: US)
  Receive Date: 20250728
  Receipt Date: 20250728
  Transmission Date: 20251020
  Serious: No
  Sender: ELI LILLY AND COMPANY
  Company Number: US-ELI_LILLY_AND_COMPANY-US202507021415

PATIENT
  Age: 63 Year

DRUGS (2)
  1. ZEPBOUND [Suspect]
     Active Substance: TIRZEPATIDE
     Indication: Weight control
     Route: 058
     Dates: start: 202411
  2. ZEPBOUND [Suspect]
     Active Substance: TIRZEPATIDE
     Indication: Weight control
     Route: 058
     Dates: start: 202504

REACTIONS (9)
  - Irritable bowel syndrome [Unknown]
  - Hyperphagia [Unknown]
  - Hunger [Unknown]
  - Food craving [Unknown]
  - Lack of satiety [Unknown]
  - Weight increased [Unknown]
  - Drug ineffective [Unknown]
  - Nausea [Unknown]
  - Alopecia [Unknown]
